FAERS Safety Report 14982318 (Version 1)
Quarter: 2018Q2

REPORT INFORMATION
  Report Type: Spontaneous
  Country: US (occurrence: US)
  Receive Date: 20180515
  Receipt Date: 20180515
  Transmission Date: 20180711
  Serious: No
  Sender: FDA-Public Use
  Company Number: None

PATIENT
  Age: 79 Year
  Sex: Male

DRUGS (1)
  1. REPATHA [Suspect]
     Active Substance: EVOLOCUMAB
     Dates: start: 20180213

REACTIONS (4)
  - Blood pressure increased [None]
  - Nausea [None]
  - Back pain [None]
  - Abdominal discomfort [None]

NARRATIVE: CASE EVENT DATE: 20180515
